FAERS Safety Report 4356051-9 (Version None)
Quarter: 2004Q2

REPORT INFORMATION
  Report Type: 
  Country: None (occurrence: None)
  Receive Date: 20040429
  Receipt Date: 20030313
  Transmission Date: 20050107
  Serious: Yes (Other)
  Sender: FDA-Public Use
  Company Number: 1670103A

PATIENT
  Sex: Male

DRUGS (2)
  1. IMODIUM A-D [Suspect]
     Dosage: PO
     Route: 048
  2. IRON [Concomitant]

REACTIONS (1)
  - URINE ANALYSIS ABNORMAL [None]
